FAERS Safety Report 6475577-5 (Version None)
Quarter: 2009Q4

REPORT INFORMATION
  Report Type: 
  Country: None (occurrence: None)
  Receive Date: 20091204
  Receipt Date: 20091126
  Transmission Date: 20100525
  Serious: Yes (Other)
  Sender: FDA-Public Use
  Company Number: GB-BRISTOL-MYERS SQUIBB COMPANY-14547525

PATIENT
  Age: 70 Year
  Sex: Male

DRUGS (4)
  1. CETUXIMAB [Suspect]
     Indication: HEAD AND NECK CANCER
     Dates: start: 20070101
  2. CARBOPLATIN [Suspect]
     Indication: HEAD AND NECK CANCER
  3. GEMCITABINE [Suspect]
     Indication: HEAD AND NECK CANCER
  4. RADIATION THERAPY [Suspect]
     Indication: HEAD AND NECK CANCER
     Dosage: 68GY OF RADIOTHERAPY IN 34 FRACTIONS OVER 7 WEEKS USING A TWO PHASE TECHNIQUE

REACTIONS (1)
  - SKIN REACTION [None]
